FAERS Safety Report 8928096 (Version 3)
Quarter: 2013Q1

REPORT INFORMATION
  Report Type: Spontaneous
  Country: US (occurrence: None)
  Receive Date: 20121120
  Receipt Date: 20130219
  Transmission Date: 20140127
  Serious: Yes (Hospitalization)
  Sender: FDA-Public Use
  Company Number: 2012MPI00504

PATIENT
  Age: 66 Year
  Sex: Male
  Weight: 70.4 kg

DRUGS (16)
  1. BRENTUXIMAB VEDOTIN [Suspect]
     Indication: MYCOSIS FUNGOIDES
     Dosage: Q21D
     Route: 042
     Dates: start: 20121015, end: 20121015
  2. AUGMENTIN (AMOXICILLIN, CLAVULANIC ACID) [Concomitant]
  3. ASPIRIN (ACETYLSALICYLIC ACID) [Concomitant]
  4. TENORMIN (ATENOLOL [Concomitant]
  5. BACITRACIN/ NEOMYCIN/ POLYMYXIN B) (BACITRACIN, NEOMYCIN, POLYMYXIN B) [Concomitant]
  6. WELLBUTRIN (BUPROPION HYDROCHLORIDE) [Concomitant]
  7. COLACE (DOCUSATE SODIUM) [Concomitant]
  8. ZETIA (EZETIMIBE) [Concomitant]
  9. VISTARIL (HYDROXYZINE EMBONATE) [Concomitant]
  10. SYNTHROID (LEVOTHYROXINE SODIUM) [Concomitant]
  11. PRILOSEC [Concomitant]
  12. ZOFRAN (ONDANSETRON HYDROCHLORIDE) [Concomitant]
  13. PRAVACHOL (PRAVASTATIN SODIUM) [Concomitant]
  14. RESTORIL [Suspect]
  15. TRAZODONE (TRAZODONE) [Concomitant]
  16. FENOFIBRATE (FENOFIBRATE) [Concomitant]

REACTIONS (30)
  - Neck pain [None]
  - Blood pressure systolic increased [None]
  - Musculoskeletal chest pain [None]
  - Diverticulitis [None]
  - Heart rate decreased [None]
  - Oxygen saturation decreased [None]
  - Skin lesion [None]
  - Erythema [None]
  - Aortic arteriosclerosis [None]
  - Aortic calcification [None]
  - Atelectasis [None]
  - Condition aggravated [None]
  - Myalgia [None]
  - Arteriosclerosis coronary artery [None]
  - Arteriosclerosis coronary artery [None]
  - Mycosis fungoides [None]
  - Malignant neoplasm progression [None]
  - Treatment failure [None]
  - Musculoskeletal stiffness [None]
  - Dizziness [None]
  - Decreased appetite [None]
  - Infrequent bowel movements [None]
  - Blood potassium decreased [None]
  - Blood calcium decreased [None]
  - Myalgia [None]
  - Torticollis [None]
  - Myositis [None]
  - Musculoskeletal pain [None]
  - Musculoskeletal chest pain [None]
  - Bone pain [None]
